FAERS Safety Report 16955123 (Version 1)
Quarter: 2019Q4

REPORT INFORMATION
  Report Type: Report from Study
  Country: IT (occurrence: IT)
  Receive Date: 20191024
  Receipt Date: 20191024
  Transmission Date: 20200122
  Serious: Yes (Hospitalization)
  Sender: FDA-Public Use
  Company Number: IT-TEVA-2019-IT-1125916

PATIENT
  Age: 65 Year
  Sex: Male

DRUGS (5)
  1. UROREC 8 MG HARD CAPSULES [Concomitant]
  2. MOTILIUM [Concomitant]
     Active Substance: DOMPERIDONE
  3. IBUPROFEN. [Suspect]
     Active Substance: IBUPROFEN
     Indication: ANTIINFLAMMATORY THERAPY
     Route: 065
  4. SERENASE 10 MG/ML GOCCE ORALI, SOLUZIONE [Concomitant]
     Active Substance: HALOPERIDOL
  5. BRINTELLIX [Concomitant]
     Active Substance: VORTIOXETINE HYDROBROMIDE

REACTIONS (1)
  - Drug-induced liver injury [Recovering/Resolving]

NARRATIVE: CASE EVENT DATE: 20190917
